FAERS Safety Report 13451360 (Version 1)
Quarter: 2017Q2

REPORT INFORMATION
  Report Type: Spontaneous
  Country: SE (occurrence: None)
  Receive Date: 20170417
  Receipt Date: 20170417
  Transmission Date: 20170830
  Serious: Yes (Hospitalization)
  Sender: FDA-Public Use
  Company Number: SE2017K2331SPO

PATIENT
  Age: 65 Year
  Sex: Male

DRUGS (12)
  1. KALEORID (POTASSIUM CHLORIDE) [Suspect]
     Active Substance: POTASSIUM CHLORIDE
     Route: 048
     Dates: start: 20141007, end: 20141116
  2. FURIX (FUROSEMIDE) [Concomitant]
     Active Substance: FUROSEMIDE
  3. BETOLVEX (CYANOCOBALAMIN) [Concomitant]
  4. WARAN (WARFARIN, WARFARIN SODIUM) [Suspect]
     Active Substance: WARFARIN SODIUM
     Indication: ATRIAL FIBRILLATION
     Route: 048
     Dates: start: 20130404, end: 20150804
  5. LEVAXIN (LEVOTHYROXINE, LEVOTHYROXINE SODIUM, ANHYDROUS) [Concomitant]
  6. SPIRONOLAKTON TAKEDA (SPIRONOLACTONE) [Concomitant]
  7. ENALAPRIL KRKA (ENALAPRIL) TABLET [Suspect]
     Active Substance: ENALAPRIL
     Indication: HYPERTENSION
     Route: 048
     Dates: start: 20120109, end: 20141119
  8. STILNOCT (ZOLPIDEM, ZOLPIDEM TARTRATE) [Concomitant]
  9. FOLACIN (FOLIC ACID (HYDRATED)) [Concomitant]
  10. SELOKENZOC (METOPROLOL, METOPROLOL SUCCINATE, METOPROLOL TARTRATE) [Concomitant]
  11. CITALOPRAM ACTAVIS (CITALOPRAM, CITALOPRAM HYDROBROMIDE) [Concomitant]
  12. SIMVASTATIN ARROW (SIMVASTATIN)UNKNOWN [Concomitant]
     Active Substance: SIMVASTATIN

REACTIONS (13)
  - International normalised ratio increased [None]
  - Pyelitis [None]
  - Escherichia test positive [None]
  - Metabolic acidosis [None]
  - Sepsis [None]
  - Anaemia [None]
  - Gastrointestinal haemorrhage [None]
  - Hyperkalaemia [None]
  - Urosepsis [None]
  - Fatigue [None]
  - Hypotension [None]
  - Dehydration [None]
  - Renal failure [None]

NARRATIVE: CASE EVENT DATE: 20141113
